FAERS Safety Report 12327859 (Version 1)
Quarter: 2016Q2

REPORT INFORMATION
  Report Type: Spontaneous
  Country: US (occurrence: US)
  Receive Date: 20160503
  Receipt Date: 20160503
  Transmission Date: 20160815
  Serious: No
  Sender: FDA-Public Use
  Company Number: US-WARNER CHILCOTT, LLC-1051336

PATIENT
  Age: 66 Year
  Sex: Female

DRUGS (5)
  1. METFORMIN [Concomitant]
     Active Substance: METFORMIN HYDROCHLORIDE
  2. CENTRUM [Concomitant]
     Active Substance: VITAMINS
  3. ATELVIA [Suspect]
     Active Substance: RISEDRONATE SODIUM
     Indication: OSTEOPOROSIS
     Route: 048
     Dates: start: 20150509, end: 20150523
  4. ASPIRIN. [Concomitant]
     Active Substance: ASPIRIN
  5. GLIPIZIDE. [Concomitant]
     Active Substance: GLIPIZIDE

REACTIONS (13)
  - Back pain [None]
  - Decreased appetite [None]
  - Chest pain [None]
  - Influenza like illness [None]
  - Pyrexia [None]
  - Muscle spasms [None]
  - Cough [None]
  - Photophobia [None]
  - Eye pain [None]
  - Dyspnoea [None]
  - Eyelid oedema [None]
  - Chills [None]
  - Fatigue [None]
